FAERS Safety Report 24979222 (Version 2)
Quarter: 2025Q1

REPORT INFORMATION
  Report Type: Spontaneous
  Country: US (occurrence: US)
  Receive Date: 20250218
  Receipt Date: 20250310
  Transmission Date: 20250409
  Serious: Yes (Other)
  Sender: TEVA
  Company Number: US-TEVA-VS-3292326

PATIENT
  Age: 35 Year
  Sex: Male

DRUGS (2)
  1. UZEDY [Suspect]
     Active Substance: RISPERIDONE
     Indication: Schizophrenia
     Dosage: 100/0.28MG/ML
     Route: 065
     Dates: start: 202412
  2. UZEDY [Suspect]
     Active Substance: RISPERIDONE
     Indication: Bipolar disorder
     Dosage: STRENGTH: 100 MG / 0.28 ML
     Route: 065
     Dates: start: 20250123

REACTIONS (5)
  - Hallucinations, mixed [Recovered/Resolved]
  - Injection site pain [Unknown]
  - Injection site mass [Unknown]
  - Dizziness [Unknown]
  - Dizziness [Unknown]

NARRATIVE: CASE EVENT DATE: 20250101
